FAERS Safety Report 22224515 (Version 1)
Quarter: 2023Q2

REPORT INFORMATION
  Report Type: Report from Study
  Country: GB (occurrence: GB)
  Receive Date: 20230418
  Receipt Date: 20230418
  Transmission Date: 20230721
  Serious: Yes (Other)
  Sender: FDA-Public Use
  Company Number: GB-APIL-2311574US

PATIENT
  Sex: Female

DRUGS (1)
  1. BOTULINUM TOXIN TYPE A [Suspect]
     Active Substance: BOTULINUM TOXIN TYPE A
     Indication: Skin wrinkling
     Dosage: UNK, SINGLE

REACTIONS (4)
  - Infection [Unknown]
  - Soft tissue infection [Unknown]
  - Nervous system disorder [Unknown]
  - Counterfeit product administered [Unknown]
